FAERS Safety Report 8587279-X (Version None)
Quarter: 2012Q3

REPORT INFORMATION
  Report Type: 
  Country: None (occurrence: None)
  Receive Date: 20120810
  Receipt Date: 20120213
  Transmission Date: 20120928
  Serious: No
  Sender: FDA-Public Use
  Company Number: US-ASTRAZENECA-2012SE09758

PATIENT
  Age: 74 Year
  Sex: Female

DRUGS (8)
  1. CHONDROITIN [Concomitant]
     Indication: ARTHRALGIA
  2. KLOR-CON [Concomitant]
  3. ARIMIDEX [Suspect]
     Dosage: TWO PILLS OF ARIMIDEX IN A DAY
     Route: 048
  4. ATENOLOL [Concomitant]
  5. HYDROCHLOROTHIAZIDE [Concomitant]
  6. LISINOPRIL [Concomitant]
  7. ARIMIDEX [Suspect]
     Indication: BREAST CANCER
     Route: 048
  8. GLUCOSAMINE [Concomitant]
     Indication: ARTHRALGIA

REACTIONS (5)
  - MUSCULOSKELETAL PAIN [None]
  - ARTHRALGIA [None]
  - PAIN [None]
  - BACK PAIN [None]
  - INCORRECT DOSE ADMINISTERED [None]
